FAERS Safety Report 20077425 (Version 2)
Quarter: 2021Q4

REPORT INFORMATION
  Report Type: Spontaneous
  Country: JP (occurrence: JP)
  Receive Date: 20211116
  Receipt Date: 20211214
  Transmission Date: 20220303
  Serious: Yes (Other)
  Sender: FDA-Public Use
  Company Number: JP-CELGENE-JPN-20211103336

PATIENT
  Age: 64 Year

DRUGS (1)
  1. VIDAZA [Suspect]
     Active Substance: AZACITIDINE
     Indication: Product used for unknown indication
     Route: 065
     Dates: start: 202110, end: 202111

REACTIONS (2)
  - Cardiac dysfunction [Recovered/Resolved]
  - Systolic dysfunction [Recovered/Resolved]

NARRATIVE: CASE EVENT DATE: 20211001
